FAERS Safety Report 7512863-1 (Version None)
Quarter: 2011Q2

REPORT INFORMATION
  Report Type: 
  Country: None (occurrence: None)
  Receive Date: 20110520
  Receipt Date: 20110512
  Transmission Date: 20111010
  Serious: Yes (Death)
  Sender: FDA-Public Use
  Company Number: JPI-P-014572

PATIENT
  Age: 41 Year
  Sex: Female
  Weight: 54.4316 kg

DRUGS (6)
  1. XYREM [Suspect]
     Indication: INSOMNIA
     Dosage: ORAL; 8.5 (4.25 , 2 IN 1 D), ORAL
     Dates: start: 20091101
  2. XYREM [Suspect]
     Indication: FIBROMYALGIA
     Dosage: ORAL; 8.5 (4.25 , 2 IN 1 D), ORAL
     Dates: start: 20091101
  3. XYREM [Suspect]
     Indication: SOMNOLENCE
     Dosage: ORAL; 8.5 (4.25 , 2 IN 1 D), ORAL
     Dates: start: 20091101
  4. XYREM [Suspect]
     Indication: INSOMNIA
     Dosage: ORAL; 8.5 (4.25 , 2 IN 1 D), ORAL
     Dates: end: 20110324
  5. XYREM [Suspect]
     Indication: FIBROMYALGIA
     Dosage: ORAL; 8.5 (4.25 , 2 IN 1 D), ORAL
     Dates: end: 20110324
  6. XYREM [Suspect]
     Indication: SOMNOLENCE
     Dosage: ORAL; 8.5 (4.25 , 2 IN 1 D), ORAL
     Dates: end: 20110324

REACTIONS (5)
  - SENSITIVITY OF TEETH [None]
  - ASTHENIA [None]
  - PANIC ATTACK [None]
  - TOOTH EROSION [None]
  - DIARRHOEA [None]
